FAERS Safety Report 25423820 (Version 2)
Quarter: 2025Q2

REPORT INFORMATION
  Report Type: Spontaneous
  Country: AU (occurrence: AU)
  Receive Date: 20250611
  Receipt Date: 20250624
  Transmission Date: 20250717
  Serious: Yes (Hospitalization, Other)
  Sender: ALEXION PHARMACEUTICALS
  Company Number: AU-AstraZeneca-CH-00883082AM

PATIENT
  Age: 48 Year
  Weight: 79.3 kg

DRUGS (7)
  1. ULTOMIRIS [Suspect]
     Active Substance: RAVULIZUMAB-CWVZ
     Indication: Paroxysmal nocturnal haemoglobinuria
  2. ULTOMIRIS [Suspect]
     Active Substance: RAVULIZUMAB-CWVZ
     Dosage: 3300 MILLIGRAM, Q8W
  3. PENICILLIN V [Concomitant]
     Active Substance: PENICILLIN V
     Indication: Antibiotic prophylaxis
     Dosage: 500 MILLIGRAM, BID
     Route: 065
  4. NOREPINEPHRINE BITARTRATE [Concomitant]
     Active Substance: NOREPINEPHRINE BITARTRATE
     Route: 065
  5. DOBUTAMINE [Concomitant]
     Active Substance: DOBUTAMINE HYDROCHLORIDE
     Route: 065
  6. VASOPRESSIN [Concomitant]
     Active Substance: VASOPRESSIN
     Route: 065
  7. EPINEPHRINE [Concomitant]
     Active Substance: EPINEPHRINE
     Route: 065

REACTIONS (3)
  - Meningococcal sepsis [Not Recovered/Not Resolved]
  - Septic shock [Not Recovered/Not Resolved]
  - Acute kidney injury [Not Recovered/Not Resolved]
